FAERS Safety Report 8603319-3 (Version None)
Quarter: 2012Q3

REPORT INFORMATION
  Report Type: 
  Country: None (occurrence: None)
  Receive Date: 20120817
  Receipt Date: 20120813
  Transmission Date: 20120928
  Serious: Yes (Hospitalization, Other)
  Sender: FDA-Public Use
  Company Number: PHHY2012MX071124

PATIENT
  Sex: Female

DRUGS (2)
  1. ARCOXIA [Concomitant]
     Dosage: 1 DF, DAILY
     Dates: start: 20100701
  2. DIOVAN [Suspect]
     Indication: HYPERTENSION
     Dosage: 1 DF (160 MG), DAILY
     Dates: start: 20080601

REACTIONS (1)
  - ARTHROPATHY [None]
